FAERS Safety Report 18174856 (Version 1)
Quarter: 2020Q3

REPORT INFORMATION
  Report Type: Report from Study
  Country: BR (occurrence: BR)
  Receive Date: 20200820
  Receipt Date: 20200820
  Transmission Date: 20201103
  Serious: Yes (Hospitalization)
  Sender: FDA-Public Use
  Company Number: BR-BIOGEN-2020BI00913124

PATIENT
  Age: 43 Year
  Sex: Female

DRUGS (5)
  1. AVONEX PEN [Suspect]
     Active Substance: INTERFERON BETA-1A
  2. NORTRIPTYLINE [Suspect]
     Active Substance: NORTRIPTYLINE
     Indication: STRESS
     Route: 065
     Dates: start: 201911
  3. AVONEX PEN [Suspect]
     Active Substance: INTERFERON BETA-1A
  4. AVONEX PEN [Suspect]
     Active Substance: INTERFERON BETA-1A
     Indication: MULTIPLE SCLEROSIS
     Route: 030
     Dates: start: 20130101
  5. AVONEX PEN [Suspect]
     Active Substance: INTERFERON BETA-1A

REACTIONS (9)
  - Somnolence [Unknown]
  - Insomnia [Unknown]
  - Aphonia [Not Recovered/Not Resolved]
  - Headache [Recovered/Resolved]
  - Dizziness [Recovered/Resolved]
  - Stress [Unknown]
  - Nervousness [Unknown]
  - Dysphonia [Unknown]
  - Memory impairment [Not Recovered/Not Resolved]

NARRATIVE: CASE EVENT DATE: 201911
